FAERS Safety Report 15641283 (Version 4)
Quarter: 2019Q1

REPORT INFORMATION
  Report Type: Spontaneous
  Country: GB (occurrence: GB)
  Receive Date: 20181120
  Receipt Date: 20190319
  Transmission Date: 20190417
  Serious: Yes (Other)
  Sender: FDA-Public Use
  Company Number: PHHY2018GB158894

PATIENT
  Sex: Female

DRUGS (15)
  1. ADALIMUMAB [Suspect]
     Active Substance: ADALIMUMAB
     Indication: JUVENILE IDIOPATHIC ARTHRITIS
     Dosage: UNK
     Route: 065
  2. ABATACEPT [Suspect]
     Active Substance: ABATACEPT
     Indication: JUVENILE IDIOPATHIC ARTHRITIS
     Dosage: UNK
     Route: 065
  3. TREOSULFAN [Concomitant]
     Active Substance: TREOSULFAN
     Indication: IMMUNOSUPPRESSION
  4. ALEMTUZUMAB [Concomitant]
     Active Substance: ALEMTUZUMAB
     Indication: BONE MARROW CONDITIONING REGIMEN
     Dosage: 0.2 MG/KG, QD FROM DAYS 8 TO 4
     Route: 065
  5. ETANERCEPT [Suspect]
     Active Substance: ETANERCEPT
     Indication: JUVENILE IDIOPATHIC ARTHRITIS
     Dosage: UNK
     Route: 065
  6. TREOSULFAN [Concomitant]
     Active Substance: TREOSULFAN
     Indication: BONE MARROW CONDITIONING REGIMEN
     Dosage: 14 G/M2, QD, FROM DAYS 6 TO 4
     Route: 065
  7. ANAKINRA [Suspect]
     Active Substance: ANAKINRA
     Indication: JUVENILE IDIOPATHIC ARTHRITIS
     Dosage: UNK
     Route: 065
  8. TOCILIZUMAB. [Suspect]
     Active Substance: TOCILIZUMAB
     Indication: JUVENILE IDIOPATHIC ARTHRITIS
     Dosage: UNK
     Route: 065
  9. TOCILIZUMAB. [Suspect]
     Active Substance: TOCILIZUMAB
     Indication: STILL^S DISEASE
  10. RITUXIMAB. [Suspect]
     Active Substance: RITUXIMAB
     Indication: JUVENILE IDIOPATHIC ARTHRITIS
     Dosage: UNK
     Route: 065
  11. ABATACEPT [Suspect]
     Active Substance: ABATACEPT
     Indication: STILL^S DISEASE
  12. FLUDARABINE [Concomitant]
     Active Substance: FLUDARABINE PHOSPHATE
     Indication: IMMUNOSUPPRESSION
  13. ALEMTUZUMAB [Concomitant]
     Active Substance: ALEMTUZUMAB
     Indication: IMMUNOSUPPRESSION
  14. ILARIS [Suspect]
     Active Substance: CANAKINUMAB
     Indication: JUVENILE IDIOPATHIC ARTHRITIS
     Dosage: UNK
     Route: 065
  15. FLUDARABINE [Concomitant]
     Active Substance: FLUDARABINE PHOSPHATE
     Indication: BONE MARROW CONDITIONING REGIMEN
     Dosage: 30 MG/M2, FROM DAYS 8 TO 4
     Route: 065

REACTIONS (5)
  - Osteoporosis [Unknown]
  - Spinal fracture [Unknown]
  - Growth failure [Unknown]
  - Hypertension [Unknown]
  - Spinal compression fracture [Unknown]
